FAERS Safety Report 19186061 (Version 3)
Quarter: 2021Q4

REPORT INFORMATION
  Report Type: Report from Study
  Country: CA (occurrence: CA)
  Receive Date: 20210427
  Receipt Date: 20211120
  Transmission Date: 20220303
  Serious: Yes (Hospitalization, Other)
  Sender: FDA-Public Use
  Company Number: CA-TAKEDA-CA202011653

PATIENT
  Age: 53 Year
  Sex: Female

DRUGS (6)
  1. HUMAN IMMUNOGLOBULIN G [Suspect]
     Active Substance: HUMAN IMMUNOGLOBULIN G
     Indication: Secondary immunodeficiency
     Dosage: 8 GRAM, 1X/WEEK
     Route: 058
     Dates: start: 20191104
  2. MYLAN PANTOPRAZOLE T [Concomitant]
     Indication: Product used for unknown indication
     Dosage: 40 MILLIGRAM, ENT
     Route: 065
  3. SYNTHROID [Concomitant]
     Active Substance: LEVOTHYROXINE SODIUM
     Indication: Product used for unknown indication
     Dosage: 0.088 MILLIGRAM
     Route: 065
  4. THERACURMIN BIOACTIVE [Concomitant]
     Indication: Inflammation
     Dosage: UNK
     Route: 065
  5. VITAMIN D [Concomitant]
     Active Substance: VITAMIN D NOS
     Indication: Product used for unknown indication
     Dosage: 2000 INTERNATIONAL UNIT, QD
     Route: 065
  6. VITAMINS NOS [Concomitant]
     Active Substance: VITAMINS
     Indication: Product used for unknown indication
     Dosage: UNK
     Route: 065

REACTIONS (11)
  - Surgery [Unknown]
  - Plasma cell myeloma [Unknown]
  - Ovarian cyst [Unknown]
  - Nephrolithiasis [Unknown]
  - Hospitalisation [Unknown]
  - Pain [Unknown]
  - Vomiting [Unknown]
  - Pyrexia [Unknown]
  - Asthenia [Unknown]
  - Septic shock [Unknown]
  - Weight decreased [Unknown]

NARRATIVE: CASE EVENT DATE: 20200201
